FAERS Safety Report 13368953 (Version 4)
Quarter: 2017Q2

REPORT INFORMATION
  Report Type: Spontaneous
  Country: US (occurrence: US)
  Receive Date: 20170324
  Receipt Date: 20170615
  Transmission Date: 20170830
  Serious: Yes (Other)
  Sender: FDA-Public Use
  Company Number: US-009507513-1703USA010960

PATIENT
  Age: 55 Year
  Sex: Male
  Weight: 79.37 kg

DRUGS (14)
  1. MORPHINE [Concomitant]
     Active Substance: MORPHINE
  2. ZEPATIER [Suspect]
     Active Substance: ELBASVIR\GRAZOPREVIR
     Indication: HEPATITIS C
     Dosage: 50MG/100 MG DAILY
     Route: 048
     Dates: start: 20170222
  3. ZEPATIER [Suspect]
     Active Substance: ELBASVIR\GRAZOPREVIR
     Dosage: 50MG/100 MG DAILY
     Route: 048
     Dates: start: 20170321, end: 201706
  4. REBETOL [Suspect]
     Active Substance: RIBAVIRIN
     Dosage: 200 MG, 3 TABS BID
     Route: 048
     Dates: start: 20170321
  5. DOXYCYCLINE. [Concomitant]
     Active Substance: DOXYCYCLINE
  6. DIAZEPAM. [Concomitant]
     Active Substance: DIAZEPAM
     Route: 048
  7. METHADONE HYDROCHLORIDE. [Concomitant]
     Active Substance: METHADONE HYDROCHLORIDE
     Route: 048
  8. XOPENEX HFA [Concomitant]
     Active Substance: LEVALBUTEROL TARTRATE
  9. LACTULOSE. [Concomitant]
     Active Substance: LACTULOSE
     Route: 048
  10. MIRALAX [Concomitant]
     Active Substance: POLYETHYLENE GLYCOL 3350
     Dosage: UNK, QD
     Route: 048
  11. REBETOL [Suspect]
     Active Substance: RIBAVIRIN
     Indication: HEPATITIS C
     Dosage: 200 MG, 3 TABS BID
     Route: 048
     Dates: start: 20170222
  12. OXYBUTYNIN CHLORIDE. [Concomitant]
     Active Substance: OXYBUTYNIN CHLORIDE
     Route: 048
  13. REBETOL [Suspect]
     Active Substance: RIBAVIRIN
     Dosage: 200 MG, TID
     Route: 048
     Dates: start: 20170413, end: 201706
  14. BACLOFEN. [Concomitant]
     Active Substance: BACLOFEN

REACTIONS (10)
  - Urticaria [Recovered/Resolved]
  - Urinary tract infection [Unknown]
  - Dizziness [Recovered/Resolved]
  - Feeling abnormal [Recovered/Resolved]
  - Neuralgia [Recovered/Resolved]
  - Asthenia [Recovered/Resolved]
  - Drug dose omission [Unknown]
  - Rash [Recovered/Resolved]
  - Osteomyelitis [Recovered/Resolved]
  - Treatment noncompliance [Unknown]

NARRATIVE: CASE EVENT DATE: 2017
